FAERS Safety Report 8157460-2 (Version None)
Quarter: 2012Q1

REPORT INFORMATION
  Report Type: 
  Country: None (occurrence: None)
  Receive Date: 20120222
  Receipt Date: 20120221
  Transmission Date: 20120608
  Serious: Yes (Other)
  Sender: FDA-Public Use
  Company Number: GB-BAYER-2012-017203

PATIENT
  Age: 33 Year
  Sex: Female

DRUGS (1)
  1. CLOTRIMAZOLE [Suspect]
     Dosage: 2 OR 3 TOMES /DAY
     Route: 067
     Dates: start: 20120217

REACTIONS (1)
  - VAGINAL HAEMORRHAGE [None]
